FAERS Safety Report 5985283-9 (Version None)
Quarter: 2008Q4

REPORT INFORMATION
  Report Type: 
  Country: None (occurrence: None)
  Receive Date: 20081203
  Receipt Date: 20081027
  Transmission Date: 20090506
  Serious: Yes (Other)
  Sender: FDA-Public Use
  Company Number: 20648

PATIENT
  Sex: Female

DRUGS (1)
  1. EPIRUBICIN [Suspect]

REACTIONS (1)
  - THROMBOCYTHAEMIA [None]
